FAERS Safety Report 16973619 (Version 6)
Quarter: 2022Q2

REPORT INFORMATION
  Report Type: Spontaneous
  Country: US (occurrence: US)
  Receive Date: 20191030
  Receipt Date: 20220504
  Transmission Date: 20220721
  Serious: No
  Sender: FDA-Public Use
  Company Number: US-PFIZER INC-2019470188

PATIENT
  Age: 50 Year
  Sex: Male

DRUGS (3)
  1. LYRICA [Suspect]
     Active Substance: PREGABALIN
     Indication: Pain
     Dosage: 100 MG, AS NEEDED (THREE TIMES A DAY)
     Route: 048
  2. LYRICA [Suspect]
     Active Substance: PREGABALIN
     Dosage: 200 MG, AS NEEDED [TWICE A DAY (BID)]
     Route: 048
  3. LYRICA [Suspect]
     Active Substance: PREGABALIN
     Dosage: 200 MG, THREE TIMES A DAY
     Route: 048

REACTIONS (3)
  - Mental disorder [Unknown]
  - Depression [Unknown]
  - Fatigue [Unknown]
